FAERS Safety Report 17198714 (Version 1)
Quarter: 2019Q4

REPORT INFORMATION
  Report Type: Spontaneous
  Country: GB (occurrence: GB)
  Receive Date: 20191225
  Receipt Date: 20191225
  Transmission Date: 20200122
  Serious: Yes (Other)
  Sender: FDA-Public Use
  Company Number: GB-SAMSUNG BIOEPIS-SB-2019-38561

PATIENT
  Age: 11 Year
  Sex: Female
  Weight: 40 kg

DRUGS (2)
  1. INFLIXIMAB [Suspect]
     Active Substance: INFLIXIMAB
     Indication: CROHN^S DISEASE
     Route: 042
  2. PIZOTIFEN [Concomitant]
     Active Substance: PIZOTYLINE
     Indication: PRODUCT USED FOR UNKNOWN INDICATION
     Dosage: UNKNOWN
     Route: 065

REACTIONS (8)
  - Rash [Recovered/Resolved]
  - Nausea [Recovered/Resolved]
  - Retching [Recovered/Resolved]
  - Pain [Recovered/Resolved]
  - Discomfort [Recovered/Resolved]
  - Swelling face [Recovered/Resolved]
  - Depressed mood [Recovered/Resolved]
  - Erythema [Recovered/Resolved]

NARRATIVE: CASE EVENT DATE: 20190807
